FAERS Safety Report 13985998 (Version 2)
Quarter: 2019Q1

REPORT INFORMATION
  Report Type: Spontaneous
  Country: US (occurrence: US)
  Receive Date: 20170919
  Receipt Date: 20190318
  Transmission Date: 20190417
  Serious: Yes (Hospitalization, Other)
  Sender: FDA-Public Use
  Company Number: US-DRREDDYS-USA/USA/17/0093203

PATIENT
  Age: 66 Year
  Sex: Male

DRUGS (16)
  1. METOPROLOL SUCCINATE ER TABLETS 25 MG + 50 MG [Concomitant]
     Active Substance: METOPROLOL SUCCINATE
     Indication: PRODUCT USED FOR UNKNOWN INDICATION
  2. ACETYLSALICYLIC ACID [Concomitant]
     Active Substance: ASPIRIN
     Indication: PRODUCT USED FOR UNKNOWN INDICATION
  3. LORAZEPAM. [Concomitant]
     Active Substance: LORAZEPAM
     Dosage: AS NEEDED
     Route: 042
  4. NAPROXEN. [Concomitant]
     Active Substance: NAPROXEN
     Indication: BACK PAIN
     Dosage: AS NEEDED
  5. CLONIDINE. [Concomitant]
     Active Substance: CLONIDINE
     Indication: TACHYCARDIA
  6. RISPERIDONE. [Suspect]
     Active Substance: RISPERIDONE
     Indication: POSTOPERATIVE DELIRIUM
     Dosage: INCREASED
     Route: 048
  7. RISPERIDONE. [Suspect]
     Active Substance: RISPERIDONE
     Dosage: AS NEEDED
     Route: 048
  8. LORAZEPAM. [Concomitant]
     Active Substance: LORAZEPAM
     Indication: AGITATION
     Dosage: AS NEEDED
     Route: 042
  9. HEPARIN [Concomitant]
     Active Substance: HEPARIN SODIUM
     Indication: PRODUCT USED FOR UNKNOWN INDICATION
     Route: 058
  10. HALOPERIDOL. [Concomitant]
     Active Substance: HALOPERIDOL
     Indication: AGITATION
     Dosage: HOSPITAL DAY 20
     Route: 030
  11. RISPERIDONE. [Suspect]
     Active Substance: RISPERIDONE
     Indication: AGITATION
     Dosage: ON HOSPITAL DAY 12
     Route: 048
  12. ACETYLSALICYLIC ACID [Concomitant]
     Active Substance: ASPIRIN
  13. CLONIDINE. [Concomitant]
     Active Substance: CLONIDINE
     Indication: POSTOPERATIVE DELIRIUM
     Route: 062
  14. LORAZEPAM. [Concomitant]
     Active Substance: LORAZEPAM
     Route: 042
  15. PARACETAMOL [Concomitant]
     Active Substance: ACETAMINOPHEN
     Indication: HEADACHE
     Dosage: AS NEEDED
     Route: 048
  16. CLOPIDOGREL BISULFATE 75 MG [Concomitant]
     Active Substance: CLOPIDOGREL BISULFATE
     Indication: PRODUCT USED FOR UNKNOWN INDICATION

REACTIONS (5)
  - Leukopenia [Recovered/Resolved]
  - Postoperative delirium [Unknown]
  - Withdrawal syndrome [Unknown]
  - Neutropenia [Recovered/Resolved]
  - Alcohol withdrawal syndrome [Unknown]
